FAERS Safety Report 4942816-9 (Version None)
Quarter: 2006Q1

REPORT INFORMATION
  Report Type: 
  Country: None (occurrence: None)
  Receive Date: 20060314
  Receipt Date: 20051101
  Transmission Date: 20060701
  Serious: Yes (Hospitalization)
  Sender: FDA-Public Use
  Company Number: PHBS2005JP16225

PATIENT
  Sex: Female

DRUGS (2)
  1. TOFRANIL [Suspect]
     Route: 048
  2. ARICEPT [Concomitant]
     Route: 048

REACTIONS (2)
  - BLOOD ZINC DECREASED [None]
  - DECUBITUS ULCER [None]
